FAERS Safety Report 8507763-4 (Version None)
Quarter: 2012Q3

REPORT INFORMATION
  Report Type: 
  Country: None (occurrence: None)
  Receive Date: 20120709
  Receipt Date: 20120709
  Transmission Date: 20120928
  Serious: No
  Sender: FDA-Public Use
  Company Number: None

PATIENT

DRUGS (4)
  1. PERFOROMIST [Suspect]
  2. ZOCOR [Suspect]
     Dosage: ORAL
     Route: 048
  3. ADALAT CC [Suspect]
     Dosage: ORAL
     Route: 048
  4. CIPRO [Suspect]
     Dosage: ORAL
     Route: 048

REACTIONS (6)
  - MEDICATION ERROR [None]
  - DRUG DISPENSING ERROR [None]
  - WRONG DRUG ADMINISTERED [None]
  - ASTHENIA [None]
  - INCONTINENCE [None]
  - ALTERED STATE OF CONSCIOUSNESS [None]
